FAERS Safety Report 5801003-2 (Version None)
Quarter: 2008Q3

REPORT INFORMATION
  Report Type: 
  Country: None (occurrence: None)
  Receive Date: 20080702
  Receipt Date: 20080617
  Transmission Date: 20090109
  Serious: Yes (Hospitalization)
  Sender: FDA-Public Use
  Company Number: 2008AL003512

PATIENT
  Age: 70 Year
  Weight: 81.6475 kg

DRUGS (1)
  1. DIGOXIN [Suspect]
     Indication: MYOCARDIAL INFARCTION
     Dosage: 0.125MG DAILY PO
     Route: 048

REACTIONS (2)
  - HEART RATE DECREASED [None]
  - HEART RATE IRREGULAR [None]
